FAERS Safety Report 12912076 (Version 1)
Quarter: 2016Q4

REPORT INFORMATION
  Report Type: Spontaneous
  Country: SI (occurrence: SI)
  Receive Date: 20161104
  Receipt Date: 20161104
  Transmission Date: 20170207
  Serious: Yes (Hospitalization)
  Sender: FDA-Public Use
  Company Number: SI-SA-2016SA198314

PATIENT
  Age: 54 Year
  Sex: Male
  Weight: 61 kg

DRUGS (4)
  1. RAMIPRIL. [Concomitant]
     Active Substance: RAMIPRIL
     Dates: start: 20150120
  2. SOTALOL. [Concomitant]
     Active Substance: SOTALOL
     Dates: start: 201503
  3. RIVAROXABAN [Concomitant]
     Active Substance: RIVAROXABAN
     Dates: start: 201412
  4. FABRAZYME [Suspect]
     Active Substance: AGALSIDASE BETA
     Indication: FABRY^S DISEASE
     Route: 041
     Dates: start: 20091005

REACTIONS (1)
  - Atrial fibrillation [Recovered/Resolved]

NARRATIVE: CASE EVENT DATE: 20161026
